FAERS Safety Report 26169425 (Version 1)
Quarter: 2025Q4

REPORT INFORMATION
  Report Type: Spontaneous
  Country: US (occurrence: US)
  Receive Date: 20251217
  Receipt Date: 20251217
  Transmission Date: 20260117
  Serious: Yes (Hospitalization, Other)
  Sender: PFIZER
  Company Number: US-PFIZER INC-PV202500146696

PATIENT
  Age: 84 Year
  Sex: Female

DRUGS (1)
  1. DEPO-PROVERA [Suspect]
     Active Substance: MEDROXYPROGESTERONE ACETATE
     Indication: Abnormal uterine bleeding
     Dosage: AT HIGHER DOSAGE
     Dates: start: 1979, end: 1987

REACTIONS (15)
  - Meningioma [Unknown]
  - Hysterosalpingo-oophorectomy [Unknown]
  - Intracranial pressure increased [Unknown]
  - Intracranial venous sinus stenosis [Unknown]
  - Neoplasm progression [Unknown]
  - Headache [Not Recovered/Not Resolved]
  - Migraine [Unknown]
  - Vomiting [Unknown]
  - Vertigo [Not Recovered/Not Resolved]
  - Tinnitus [Not Recovered/Not Resolved]
  - Loss of personal independence in daily activities [Unknown]
  - Auditory disorder [Unknown]
  - Aura [Unknown]
  - Illness [Unknown]
  - Disease progression [Unknown]

NARRATIVE: CASE EVENT DATE: 19820101
